FAERS Safety Report 9999231 (Version 1)
Quarter: 2014Q1

REPORT INFORMATION
  Report Type: Spontaneous
  Country: US (occurrence: None)
  Receive Date: 20140311
  Receipt Date: 20140311
  Transmission Date: 20141002
  Serious: Yes (Disabling)
  Sender: FDA-Public Use
  Company Number: None

PATIENT
  Age: 42 Year
  Sex: Female
  Weight: 113.4 kg

DRUGS (2)
  1. CIPRO [Suspect]
     Indication: ACNE
     Dosage: 1 PILL TWICE DAILY
     Route: 048
     Dates: start: 20140219, end: 20140302
  2. CIPRO [Suspect]
     Indication: STAPHYLOCOCCAL SKIN INFECTION
     Dosage: 1 PILL TWICE DAILY
     Route: 048
     Dates: start: 20140219, end: 20140302

REACTIONS (7)
  - Joint swelling [None]
  - Gait disturbance [None]
  - Swelling face [None]
  - Local swelling [None]
  - Local swelling [None]
  - Muscular weakness [None]
  - Pain [None]
